FAERS Safety Report 4918627-7 (Version None)
Quarter: 2006Q1

REPORT INFORMATION
  Report Type: 
  Country: None (occurrence: None)
  Receive Date: 20060222
  Receipt Date: 20051213
  Transmission Date: 20060701
  Serious: Yes (Hospitalization)
  Sender: FDA-Public Use
  Company Number: FR-BRISTOL-MYERS SQUIBB COMPANY-13215728

PATIENT
  Age: 37 Year
  Sex: Female
  Weight: 61 kg

DRUGS (8)
  1. SUSTIVA [Suspect]
     Route: 048
     Dates: start: 20031219, end: 20040112
  2. RIFAMPICIN [Concomitant]
     Indication: TUBERCULOSIS
     Route: 048
     Dates: start: 20030902
  3. VIDEX [Concomitant]
     Dates: start: 20031219
  4. EPIVIR [Concomitant]
     Dates: start: 20031219
  5. BACTRIM [Concomitant]
     Dates: start: 20030902
  6. CORTANCYL [Concomitant]
     Indication: PERICARDITIS TUBERCULOUS
     Route: 048
     Dates: start: 20030902, end: 20040129
  7. DEROXAT [Concomitant]
     Route: 048
     Dates: start: 20031224, end: 20040112
  8. RIMIFON [Concomitant]
     Indication: TUBERCULOSIS
     Dates: start: 20030902

REACTIONS (1)
  - CONVERSION DISORDER [None]
